FAERS Safety Report 8826911 (Version 1)
Quarter: 2012Q4

REPORT INFORMATION
  Report Type: 
  Country: TR (occurrence: TR)
  Receive Date: 20121008
  Receipt Date: 20121008
  Transmission Date: 20130627
  Serious: Yes (Other)
  Sender: FDA-Public Use
  Company Number: TR-AMGEN-TURSP2012063160

PATIENT
  Age: 41 Year
  Sex: Female

DRUGS (2)
  1. ENBREL [Suspect]
     Indication: ANKYLOSING SPONDYLITIS
     Dosage: 50 mg, weekly
     Route: 058
     Dates: start: 20110404, end: 201209
  2. ENBREL [Suspect]
     Dosage: 25 mg, 2 times/wk
     Route: 058
     Dates: start: 201206

REACTIONS (5)
  - Immunodeficiency [Recovered/Resolved]
  - Aphthous stomatitis [Recovered/Resolved]
  - Injection site pain [Recovered/Resolved]
  - Injection site swelling [Recovered/Resolved]
  - Herpes virus infection [Recovered/Resolved]
